FAERS Safety Report 13293247 (Version 2)
Quarter: 2017Q2

REPORT INFORMATION
  Report Type: Spontaneous
  Country: US (occurrence: US)
  Receive Date: 20170303
  Receipt Date: 20170412
  Transmission Date: 20170830
  Serious: Yes (Hospitalization)
  Sender: FDA-Public Use
  Company Number: US-JNJFOC-20170118074

PATIENT
  Age: 82 Year
  Sex: Female

DRUGS (4)
  1. XARELTO [Suspect]
     Active Substance: RIVAROXABAN
     Indication: HIP SURGERY
     Dosage: 20MG/15MG
     Route: 048
     Dates: start: 201303, end: 20150129
  2. XARELTO [Suspect]
     Active Substance: RIVAROXABAN
     Indication: CEREBROVASCULAR ACCIDENT PROPHYLAXIS
     Dosage: 20MG/15MG
     Route: 048
     Dates: start: 201303, end: 20150129
  3. XARELTO [Suspect]
     Active Substance: RIVAROXABAN
     Indication: CARDIOMYOPATHY
     Dosage: 20MG/15MG
     Route: 048
     Dates: start: 201303, end: 20150129
  4. XARELTO [Suspect]
     Active Substance: RIVAROXABAN
     Indication: ATRIAL FIBRILLATION
     Dosage: 20MG/15MG
     Route: 048
     Dates: start: 201303, end: 20150129

REACTIONS (1)
  - Haemarthrosis [Recovering/Resolving]

NARRATIVE: CASE EVENT DATE: 20150120
